FAERS Safety Report 5621220-4 (Version None)
Quarter: 2008Q1

REPORT INFORMATION
  Report Type: 
  Country: None (occurrence: None)
  Receive Date: 20080114
  Receipt Date: 20061228
  Transmission Date: 20080703
  Serious: Yes (Other)
  Sender: FDA-Public Use
  Company Number: A03200700060

PATIENT
  Age: 87 Year
  Sex: Female
  Weight: 54.42 kg

DRUGS (6)
  1. PLAVIX [Suspect]
     Indication: CEREBROVASCULAR ACCIDENT
     Dosage: 75 MG QD - ORAL
     Route: 048
     Dates: start: 20061223
  2. VALSARTAN [Concomitant]
  3. NIFEDIPINE [Concomitant]
  4. ALENDRONATE SODIUM [Concomitant]
  5. EYE DROPS [Concomitant]
  6. VANCOMYCIN [Concomitant]

REACTIONS (1)
  - HALLUCINATION [None]
